FAERS Safety Report 7197669-8 (Version None)
Quarter: 2010Q4

REPORT INFORMATION
  Report Type: 
  Country: None (occurrence: None)
  Receive Date: 20101214
  Receipt Date: 20101129
  Transmission Date: 20110411
  Serious: Yes (Other)
  Sender: FDA-Public Use
  Company Number: S07-GER-02887-01

PATIENT
  Age: 49 Year
  Sex: Female

DRUGS (4)
  1. ESCITALOPRAM [Suspect]
     Dosage: 10 MG (10 MG, 1 IN 1 D),ORAL
     Route: 048
     Dates: start: 20070217, end: 20070217
  2. STANGYL (TRIMIPRAMIDE MALEATE) (100 MILLIGRAM, TABLETS) [Suspect]
     Dosage: 100 MG (100 MG, 1 IN 1 D), ORAL; 75 MG (75 MG, 1 IN 1 D),ORAL
     Route: 048
     Dates: start: 20070128, end: 20070211
  3. STANGYL (TRIMIPRAMIDE MALEATE) (100 MILLIGRAM, TABLETS) [Suspect]
     Dosage: 100 MG (100 MG, 1 IN 1 D), ORAL; 75 MG (75 MG, 1 IN 1 D),ORAL
     Route: 048
     Dates: start: 20070212, end: 20070213
  4. BISOPROLOL FUMARATE [Concomitant]

REACTIONS (12)
  - AFFECT LABILITY [None]
  - AGITATION [None]
  - ALCOHOLISM [None]
  - DEPRESSION [None]
  - DISEASE RECURRENCE [None]
  - NERVOUSNESS [None]
  - PANIC DISORDER [None]
  - RESTLESSNESS [None]
  - SLEEP DISORDER [None]
  - SUICIDAL IDEATION [None]
  - TENSION [None]
  - WITHDRAWAL SYNDROME [None]
